FAERS Safety Report 8532223-4 (Version None)
Quarter: 2012Q3

REPORT INFORMATION
  Report Type: 
  Country: None (occurrence: None)
  Receive Date: 20120723
  Receipt Date: 20120718
  Transmission Date: 20120928
  Serious: Yes (Hospitalization)
  Sender: FDA-Public Use
  Company Number: CA-ROCHE-1090540

PATIENT
  Sex: Female
  Weight: 63.56 kg

DRUGS (7)
  1. PERCOCET [Concomitant]
  2. LIPITOR [Concomitant]
  3. ACTEMRA [Suspect]
     Indication: RHEUMATOID ARTHRITIS
     Route: 042
     Dates: start: 20120328, end: 20120613
  4. ARAVA [Concomitant]
  5. ATENOLOL [Concomitant]
  6. PREDNISONE [Concomitant]
  7. COUMADIN [Concomitant]

REACTIONS (2)
  - FALL [None]
  - SPINAL FRACTURE [None]
